FAERS Safety Report 6344533-X (Version None)
Quarter: 2009Q3

REPORT INFORMATION
  Report Type: 
  Country: None (occurrence: None)
  Receive Date: 20090908
  Receipt Date: 20090826
  Transmission Date: 20100115
  Serious: Yes (Hospitalization)
  Sender: FDA-Public Use
  Company Number: FR-PFIZER INC-2009259823

PATIENT
  Age: 58 Year

DRUGS (10)
  1. FELDENE [Suspect]
     Indication: NECK PAIN
     Dosage: UNK
     Route: 048
     Dates: start: 20070927, end: 20071014
  2. XANAX [Suspect]
     Dosage: UNK
     Route: 048
     Dates: start: 20071001, end: 20071201
  3. PROPOFAN [Suspect]
     Dosage: UNK
     Dates: start: 20071001, end: 20071201
  4. MYOLASTAN [Suspect]
     Dosage: UNK
     Route: 048
     Dates: start: 20071001, end: 20071201
  5. ZONDAR [Suspect]
     Dosage: 50 MG, UNK
     Dates: start: 20071001, end: 20071201
  6. CHONDROSULF [Suspect]
     Dosage: UNK
     Route: 048
     Dates: start: 20071001, end: 20071201
  7. LAROXYL [Suspect]
     Dosage: UNK
     Route: 048
     Dates: start: 20071001, end: 20071201
  8. LIVIAL [Suspect]
     Dosage: 2.5 MG, UNK
     Route: 048
     Dates: start: 20071001, end: 20071201
  9. LOGIMAX [Suspect]
     Dosage: UNK
     Route: 048
     Dates: start: 20071001, end: 20071201
  10. LEVOTHYROXINE SODIUM [Concomitant]
     Dosage: UNK
     Route: 048

REACTIONS (1)
  - BONE MARROW FAILURE [None]
